FAERS Safety Report 5423073-6 (Version None)
Quarter: 2007Q3

REPORT INFORMATION
  Report Type: 
  Country: None (occurrence: None)
  Receive Date: 20070821
  Receipt Date: 20070810
  Transmission Date: 20080115
  Serious: Yes (Other)
  Sender: FDA-Public Use
  Company Number: 340026K07USA

PATIENT
  Age: 30 Year
  Sex: Female

DRUGS (4)
  1. OVIDREL [Suspect]
     Indication: INFERTILITY FEMALE
  2. FOLLISTIM [Suspect]
  3. LUPRON [Suspect]
  4. MENOPUR [Suspect]

REACTIONS (3)
  - ABORTION SPONTANEOUS [None]
  - DRUG EXPOSURE DURING PREGNANCY [None]
  - MENORRHAGIA [None]
